FAERS Safety Report 4558086-X (Version None)
Quarter: 2005Q1

REPORT INFORMATION
  Report Type: 
  Country: None (occurrence: None)
  Receive Date: 20050121
  Receipt Date: 20040615
  Transmission Date: 20050727
  Serious: No
  Sender: FDA-Public Use
  Company Number: US-BRISTOL-MYERS SQUIBB COMPANY-12730651

PATIENT
  Sex: Female

DRUGS (4)
  1. SERZONE [Suspect]
     Indication: DEPRESSION
     Route: 048
     Dates: start: 19991022
  2. ANAPROX [Concomitant]
  3. PHENERGAN [Concomitant]
  4. AMBIEN [Concomitant]

REACTIONS (2)
  - BACK PAIN [None]
  - HEPATIC ENZYME INCREASED [None]
